FAERS Safety Report 6120237-3 (Version None)
Quarter: 2009Q1

REPORT INFORMATION
  Report Type: 
  Country: None (occurrence: None)
  Receive Date: 20090312
  Receipt Date: 20090305
  Transmission Date: 20090719
  Serious: Yes (Other)
  Sender: FDA-Public Use
  Company Number: 210059

PATIENT
  Age: 31 Month
  Sex: 0

DRUGS (1)
  1. PROPOFOL [Suspect]
     Indication: SEDATIVE THERAPY

REACTIONS (5)
  - ASPIRATION [None]
  - COUGH [None]
  - OXYGEN SATURATION DECREASED [None]
  - RESPIRATORY DISORDER [None]
  - VOMITING [None]
